FAERS Safety Report 20257762 (Version 1)
Quarter: 2021Q4

REPORT INFORMATION
  Report Type: Spontaneous
  Country: GB (occurrence: GB)
  Receive Date: 20211230
  Receipt Date: 20211230
  Transmission Date: 20220303
  Serious: Yes (Life-Threatening, Hospitalization, Other)
  Sender: FDA-Public Use
  Company Number: None

PATIENT
  Age: 50 Year
  Sex: Female

DRUGS (12)
  1. TOFACITINIB [Suspect]
     Active Substance: TOFACITINIB
     Indication: Psoriatic arthropathy
     Dosage: 5 MG, 2X/DAY
     Route: 048
     Dates: start: 20210115
  2. CALCIPOTRIENE [Concomitant]
     Active Substance: CALCIPOTRIENE
     Route: 061
  3. CODEINE [Concomitant]
     Active Substance: CODEINE
  4. EMPAGLIFLOZIN [Concomitant]
     Active Substance: EMPAGLIFLOZIN
  5. FERROUS FUMARATE [Concomitant]
     Active Substance: FERROUS FUMARATE
  6. FOLIC ACID [Concomitant]
     Active Substance: FOLIC ACID
  7. METFORMIN HYDROCHLORIDE [Concomitant]
     Active Substance: METFORMIN HYDROCHLORIDE
  8. METHOTREXATE SODIUM [Concomitant]
     Active Substance: METHOTREXATE SODIUM
     Dosage: UNK
     Dates: start: 2013
  9. ALBUTEROL SULFATE [Concomitant]
     Active Substance: ALBUTEROL SULFATE
  10. SITAGLIPTIN [Concomitant]
     Active Substance: SITAGLIPTIN
  11. ATORVASTATIN [Concomitant]
     Active Substance: ATORVASTATIN
  12. COAL TAR [Concomitant]
     Active Substance: COAL TAR

REACTIONS (2)
  - Metastases to liver [Unknown]
  - Hyponatraemia [Unknown]

NARRATIVE: CASE EVENT DATE: 20211218
